FAERS Safety Report 18130271 (Version 1)
Quarter: 2020Q3

REPORT INFORMATION
  Report Type: Spontaneous
  Country: US (occurrence: US)
  Receive Date: 20200810
  Receipt Date: 20200810
  Transmission Date: 20201103
  Serious: No
  Sender: FDA-Public Use
  Company Number: US-BAYER-2020-159609

PATIENT
  Age: 73 Year
  Sex: Female

DRUGS (1)
  1. EOVIST [Suspect]
     Active Substance: GADOXETATE DISODIUM
     Indication: MAGNETIC RESONANCE IMAGING LIVER
     Dosage: UNK, ONCE
     Route: 042
     Dates: start: 20200804, end: 20200804

REACTIONS (2)
  - Contrast media allergy [Recovered/Resolved]
  - Urticaria [Recovered/Resolved]

NARRATIVE: CASE EVENT DATE: 20200804
